FAERS Safety Report 8097762-1 (Version None)
Quarter: 2012Q1

REPORT INFORMATION
  Report Type: 
  Country: None (occurrence: None)
  Receive Date: 20120128
  Receipt Date: 20110715
  Transmission Date: 20120608
  Serious: No
  Sender: FDA-Public Use
  Company Number: US-ABBOTT-11P-163-0839947-00

PATIENT
  Sex: Male

DRUGS (1)
  1. HUMIRA [Suspect]
     Indication: PSORIATIC ARTHROPATHY
     Route: 058
     Dates: start: 20110510, end: 20110701

REACTIONS (4)
  - COMMUNICATION DISORDER [None]
  - CHEST PAIN [None]
  - GYNAECOMASTIA [None]
  - TREMOR [None]
